FAERS Safety Report 9014480 (Version 2)
Quarter: 2013Q1

REPORT INFORMATION
  Report Type: Spontaneous
  Country: JP (occurrence: JP)
  Receive Date: 20130115
  Receipt Date: 20130130
  Transmission Date: 20140127
  Serious: Yes (Hospitalization)
  Sender: FDA-Public Use
  Company Number: JP-GLAXOSMITHKLINE-B0858093A

PATIENT
  Age: 0 Year
  Sex: Female
  Weight: .54 kg

DRUGS (8)
  1. SERETIDE [Suspect]
     Indication: ASTHMA
     Dosage: 500MCG TWICE PER DAY
     Route: 064
  2. PREDNISOLONE [Concomitant]
     Indication: ASTHMA
     Route: 064
  3. PREDNISOLONE [Concomitant]
     Indication: ASTHMA
     Route: 064
  4. THEOPHYLLINE [Concomitant]
     Indication: ASTHMA
     Dosage: 400MG TWICE PER DAY
     Route: 064
  5. MONTELUKAST SODIUM [Concomitant]
     Indication: ASTHMA
     Dosage: 10MG PER DAY
     Route: 064
  6. ASPIRIN [Concomitant]
     Dosage: 100MG PER DAY
     Route: 064
  7. XOLAIR [Concomitant]
     Route: 064
  8. CICLESONIDE [Concomitant]
     Dosage: 400MCG PER DAY
     Route: 064

REACTIONS (5)
  - Low birth weight baby [Recovered/Resolved]
  - Foetal exposure during pregnancy [Unknown]
  - Maternal drugs affecting foetus [None]
  - Caesarean section [None]
  - Premature baby [None]
